FAERS Safety Report 4690679-1 (Version None)
Quarter: 2005Q2

REPORT INFORMATION
  Report Type: 
  Country: None (occurrence: None)
  Receive Date: 20050613
  Receipt Date: 20050531
  Transmission Date: 20051028
  Serious: Yes (Other)
  Sender: FDA-Public Use
  Company Number: 2005082077

PATIENT
  Sex: Female

DRUGS (2)
  1. GEODON [Suspect]
     Indication: DEPRESSION
     Dosage: ORAL
     Route: 048
     Dates: start: 20050101
  2. NARDIL [Suspect]
     Indication: DEPRESSION
     Dosage: ORAL
     Route: 048

REACTIONS (8)
  - ARTHRALGIA [None]
  - DECREASED APPETITE [None]
  - DRUG HYPERSENSITIVITY [None]
  - SEROTONIN SYNDROME [None]
  - STRESS [None]
  - VOMITING [None]
  - WEIGHT DECREASED [None]
  - WEIGHT INCREASED [None]
